FAERS Safety Report 5148254-0 (Version None)
Quarter: 2006Q4

REPORT INFORMATION
  Report Type: 
  Country: None (occurrence: None)
  Receive Date: 20060918
  Receipt Date: 20060216
  Transmission Date: 20070319
  Serious: Yes (Other)
  Sender: FDA-Public Use
  Company Number: US-JNJFOC-20060204649

PATIENT
  Age: 40 Year
  Sex: Female

DRUGS (1)
  1. TOPAMAX [Suspect]
     Indication: MIGRAINE PROPHYLAXIS
     Dosage: 25 MG, 2 IN 1 DAY, ORAL
     Route: 048
     Dates: start: 20060124, end: 20060202

REACTIONS (1)
  - ANGLE CLOSURE GLAUCOMA [None]
